FAERS Safety Report 9552624 (Version 1)
Quarter: 2013Q3

REPORT INFORMATION
  Report Type: Spontaneous
  Country: US (occurrence: US)
  Receive Date: 20130925
  Receipt Date: 20130925
  Transmission Date: 20140515
  Serious: No
  Sender: FDA-Public Use
  Company Number: US-PURDUE-USA-2012-0088757

PATIENT
  Sex: Male

DRUGS (1)
  1. MORPHINE SULFATE EXTENDED-RELEASE TABLETS (RHODES 74-769) [Suspect]
     Indication: PAIN
     Dosage: 60 MG, TID
     Route: 048
     Dates: start: 2006

REACTIONS (4)
  - Hypokinesia [Not Recovered/Not Resolved]
  - Pain [Unknown]
  - Hyperhidrosis [Not Recovered/Not Resolved]
  - Drug effect decreased [Not Recovered/Not Resolved]
